FAERS Safety Report 16971218 (Version 1)
Quarter: 2019Q4

REPORT INFORMATION
  Report Type: Spontaneous
  Country: GB (occurrence: GB)
  Receive Date: 20191029
  Receipt Date: 20191029
  Transmission Date: 20200122
  Serious: Yes (Other)
  Sender: FDA-Public Use
  Company Number: GB-JNJFOC-20191029836

PATIENT
  Age: 45 Year

DRUGS (16)
  1. ESOMEPRAZOLE. [Concomitant]
     Active Substance: ESOMEPRAZOLE MAGNESIUM
     Route: 065
  2. NITROLINGUAL [Concomitant]
     Active Substance: NITROGLYCERIN
     Dosage: AS REQUIRED, ACTUATION PUMPSPRAY
     Route: 065
  3. FEXOFENADINE [Concomitant]
     Active Substance: FEXOFENADINE HYDROCHLORIDE
     Dosage: EACH NIGHT
     Route: 065
  4. SIMVASTATIN. [Concomitant]
     Active Substance: SIMVASTATIN
     Route: 065
  5. DOXAZOSIN [Concomitant]
     Active Substance: DOXAZOSIN MESYLATE
     Route: 065
  6. VENTOLIN [Concomitant]
     Active Substance: ALBUTEROL SULFATE
     Dosage: 1-2 PUFFS; AS REQUIRED, 100MICROGRAMS/DOSE EVOHALER
     Route: 065
  7. OLODATEROL [Concomitant]
     Active Substance: OLODATEROL
     Dosage: PUFFS, 2.5 MICROGRAMS/DOSE
     Route: 065
  8. TIOTROPIUM BROMIDE [Concomitant]
     Active Substance: TIOTROPIUM BROMIDE
     Dosage: PUFFS, 2.5 MICROGRAMS/DOSE
     Route: 065
  9. STELARA [Suspect]
     Active Substance: USTEKINUMAB
     Indication: PRODUCT USED FOR UNKNOWN INDICATION
     Dosage: 90MG/1ML
     Route: 058
     Dates: start: 20180701
  10. BISOPROLOL [Concomitant]
     Active Substance: BISOPROLOL
     Route: 065
  11. CYANOCOBALAMIN. [Concomitant]
     Active Substance: CYANOCOBALAMIN
     Route: 065
  12. MONTELUKAST [Concomitant]
     Active Substance: MONTELUKAST SODIUM
     Route: 065
  13. LOSARTAN. [Concomitant]
     Active Substance: LOSARTAN
     Route: 065
  14. CLOPIDOGREL [Concomitant]
     Active Substance: CLOPIDOGREL BISULFATE
     Route: 065
  15. AMLODIPINE [Concomitant]
     Active Substance: AMLODIPINE BESYLATE
     Route: 065
  16. RELVAR ELLIPTA [Concomitant]
     Active Substance: FLUTICASONE FUROATE\VILANTEROL TRIFENATATE
     Dosage: 184MICROGRAMS/DOSE / 22MICROGRAMS/DOSE
     Route: 055

REACTIONS (1)
  - Bundle branch block left [Not Recovered/Not Resolved]

NARRATIVE: CASE EVENT DATE: 20190601
